FAERS Safety Report 9293276 (Version 1)
Quarter: 2013Q2

REPORT INFORMATION
  Report Type: Spontaneous
  Country: JP (occurrence: JP)
  Receive Date: 20130516
  Receipt Date: 20130516
  Transmission Date: 20140414
  Serious: Yes (Other)
  Sender: FDA-Public Use
  Company Number: JP-BAXTER-2012BAX000328

PATIENT
  Age: 7 Year
  Sex: Male

DRUGS (2)
  1. ADVATE [Suspect]
     Indication: FACTOR VIII DEFICIENCY
     Route: 040
  2. ADVATE [Suspect]
     Dosage: 5-8.3 U/KG PER HOUR
     Route: 042

REACTIONS (2)
  - Factor VIII inhibition [Not Recovered/Not Resolved]
  - Condition aggravated [Recovered/Resolved]
